FAERS Safety Report 25320337 (Version 1)
Quarter: 2025Q2

REPORT INFORMATION
  Report Type: Spontaneous
  Country: KR (occurrence: KR)
  Receive Date: 20250515
  Receipt Date: 20250515
  Transmission Date: 20250716
  Serious: Yes (Other)
  Sender: PFIZER
  Company Number: KR-PFIZER INC-202500099959

PATIENT
  Age: 14 Year
  Sex: Male

DRUGS (1)
  1. VFEND [Suspect]
     Active Substance: VORICONAZOLE
     Indication: Pneumonia
     Dosage: 1 DF, 1X/DAY
     Dates: start: 20221109, end: 20221110

REACTIONS (3)
  - Somnolence [Recovered/Resolved]
  - Aphasia [Recovered/Resolved]
  - Stupor [Recovered/Resolved]

NARRATIVE: CASE EVENT DATE: 20221109
